FAERS Safety Report 6239112-9 (Version None)
Quarter: 2009Q2

REPORT INFORMATION
  Report Type: 
  Country: None (occurrence: None)
  Receive Date: 20090622
  Receipt Date: 20090615
  Transmission Date: 20091009
  Serious: Yes (Hospitalization)
  Sender: FDA-Public Use
  Company Number: JP-ELI_LILLY_AND_COMPANY-JP200906004139

PATIENT
  Age: 71 Year
  Sex: Male

DRUGS (2)
  1. GEMZAR [Suspect]
     Indication: GALLBLADDER CANCER
     Dosage: 800 MG/M2, UNK
     Route: 042
  2. GEMZAR [Suspect]
     Dosage: 600 MG/M2, UNK
     Route: 042

REACTIONS (1)
  - LIVER ABSCESS [None]
